FAERS Safety Report 4383677-9 (Version None)
Quarter: 2004Q2

REPORT INFORMATION
  Report Type: 
  Country: None (occurrence: None)
  Receive Date: 20040623
  Receipt Date: 20040611
  Transmission Date: 20050107
  Serious: Yes (Life-Threatening, Hospitalization)
  Sender: FDA-Public Use
  Company Number: 369411

PATIENT
  Age: 65 Year
  Sex: Male

DRUGS (13)
  1. CARVEDILOL [Suspect]
     Route: 048
     Dates: start: 20040319
  2. PANALDINE [Suspect]
     Dosage: 200MG UNKNOWN
     Route: 048
     Dates: start: 20040421, end: 20040518
  3. ALDACTONE [Suspect]
     Dosage: 25MG UNKNOWN
     Route: 048
     Dates: start: 20040325
  4. RENIVACE [Suspect]
     Dosage: 5MG TWICE PER DAY
     Route: 048
     Dates: start: 20040322, end: 20040518
  5. LASIX [Suspect]
     Dosage: 10MG UNKNOWN
     Route: 048
     Dates: start: 20040325
  6. BAYASPIRIN [Suspect]
     Dosage: 200MG PER DAY
     Route: 048
     Dates: start: 20040423
  7. PARIET [Suspect]
     Indication: GASTRIC ULCER
     Dosage: 20MG PER DAY
     Route: 048
     Dates: start: 20040406
  8. ALLOPURINOL TAB [Suspect]
     Dosage: 100MG PER DAY
     Route: 048
     Dates: start: 20040429, end: 20040518
  9. MEXITIL [Suspect]
     Indication: VENTRICULAR TACHYCARDIA
     Dosage: 300MG PER DAY
     Route: 048
     Dates: start: 20040406, end: 20040518
  10. WARFARIN SODIUM [Suspect]
     Indication: DRUG USE FOR UNKNOWN INDICATION
     Dosage: 1MG PER DAY
     Route: 048
     Dates: start: 20040419, end: 20040516
  11. SELBEX [Concomitant]
     Indication: DRUG USE FOR UNKNOWN INDICATION
     Route: 065
     Dates: start: 20040319
  12. BIOFERMIN [Concomitant]
     Indication: DRUG USE FOR UNKNOWN INDICATION
     Route: 065
     Dates: start: 20040427
  13. GLYCERYL TRINITRATE [Concomitant]
     Indication: DRUG USE FOR UNKNOWN INDICATION
     Route: 065

REACTIONS (8)
  - AGRANULOCYTOSIS [None]
  - INFECTION [None]
  - MALAISE [None]
  - NEUTROPHIL COUNT DECREASED [None]
  - PNEUMONIA [None]
  - PYREXIA [None]
  - RENAL FAILURE [None]
  - WHITE BLOOD CELL COUNT DECREASED [None]
